FAERS Safety Report 16863770 (Version 1)
Quarter: 2019Q3

REPORT INFORMATION
  Report Type: Spontaneous
  Country: US (occurrence: US)
  Receive Date: 20190927
  Receipt Date: 20190927
  Transmission Date: 20191005
  Serious: No
  Sender: FDA-Public Use
  Company Number: US-BAUSCH-BL-2019-025407

PATIENT
  Sex: Female

DRUGS (2)
  1. UCERIS [Suspect]
     Active Substance: BUDESONIDE
     Indication: PRODUCT USE IN UNAPPROVED INDICATION
  2. UCERIS [Suspect]
     Active Substance: BUDESONIDE
     Indication: COLITIS MICROSCOPIC
     Route: 065

REACTIONS (7)
  - Prescription drug used without a prescription [Unknown]
  - Insurance issue [Unknown]
  - Product use in unapproved indication [Unknown]
  - Inability to afford medication [Unknown]
  - Drug effective for unapproved indication [Unknown]
  - Impaired work ability [Unknown]
  - Expired product administered [Unknown]

NARRATIVE: CASE EVENT DATE: 2019
